FAERS Safety Report 5286136-4 (Version None)
Quarter: 2007Q2

REPORT INFORMATION
  Report Type: 
  Country: None (occurrence: None)
  Receive Date: 20070404
  Receipt Date: 20070327
  Transmission Date: 20071010
  Serious: Yes (Hospitalization, Disabling, Other)
  Sender: FDA-Public Use
  Company Number: US-AVENTIS-200618444US

PATIENT
  Sex: Female
  Weight: 68.18 kg

DRUGS (19)
  1. KETEK [Suspect]
     Indication: SINUSITIS
     Dosage: DOSE: UNKNOWN
     Route: 048
     Dates: start: 20060220
  2. LEVAQUIN [Suspect]
     Indication: SINUSITIS
     Dosage: DOSE: UNKNOWN
     Route: 048
     Dates: start: 20060123, end: 20060127
  3. LOPID [Concomitant]
     Dosage: DOSE: UNKNOWN
  4. NIFEDIPINE [Concomitant]
     Dosage: DOSE: UNKNOWN
  5. LIPITOR [Concomitant]
     Dosage: DOSE: UNKNOWN
  6. LASIX [Concomitant]
     Dosage: DOSE: UNKNOWN
  7. PREDNISONE [Concomitant]
     Indication: COUGH
     Dosage: DOSE: UNK
     Dates: start: 20060210, end: 20060225
  8. HYDROCODONE/GUAIFENESIN COUGH SYRUP [Concomitant]
     Dosage: DOSE: UNK
  9. ALBUTEROL [Concomitant]
     Dosage: DOSE: Q 6 HOURS PRN
  10. WELLBUTRIN [Concomitant]
     Dosage: DOSE: UNK
  11. PAXIL [Concomitant]
     Dosage: DOSE: UNK
  12. K-DUR 10 [Concomitant]
     Dosage: DOSE: UNK
  13. ACCOLATE [Concomitant]
     Dosage: DOSE: UNK
  14. CLARINEX [Concomitant]
     Dosage: DOSE: UNK
  15. ADVAIR DISKUS 100/50 [Concomitant]
     Dosage: DOSE: UNK
  16. PRILOSEC                           /00661201/ [Concomitant]
     Dosage: DOSE: UNK
  17. LOTENSIN                           /00909102/ [Concomitant]
     Dosage: DOSE: UNK
  18. ASPIRIN [Concomitant]
     Dosage: DOSE: UNK
  19. FOLIC ACID [Concomitant]
     Dosage: DOSE: UNK

REACTIONS (20)
  - ABDOMINAL PAIN [None]
  - ABDOMINAL TENDERNESS [None]
  - ALANINE AMINOTRANSFERASE INCREASED [None]
  - ASPARTATE AMINOTRANSFERASE INCREASED [None]
  - ATRIAL THROMBOSIS [None]
  - BLOOD CREATININE INCREASED [None]
  - DEPRESSION [None]
  - EXTREMITY NECROSIS [None]
  - GASTROINTESTINAL NECROSIS [None]
  - GASTROOESOPHAGEAL REFLUX DISEASE [None]
  - HYPOTENSION [None]
  - IMPAIRED HEALING [None]
  - LIVER FUNCTION TEST ABNORMAL [None]
  - PSEUDOMEMBRANOUS COLITIS [None]
  - SEPSIS [None]
  - SKIN NECROSIS [None]
  - SKIN ULCER [None]
  - VISUAL DISTURBANCE [None]
  - WEIGHT DECREASED [None]
  - WHITE BLOOD CELL COUNT INCREASED [None]
